FAERS Safety Report 20810325 (Version 1)
Quarter: 2022Q2

REPORT INFORMATION
  Report Type: Spontaneous
  Country: US (occurrence: None)
  Receive Date: 20220510
  Receipt Date: 20220510
  Transmission Date: 20220721
  Serious: No
  Sender: FDA-Public Use
  Company Number: None

PATIENT
  Sex: Female

DRUGS (2)
  1. FORTEO [Suspect]
     Active Substance: TERIPARATIDE
     Indication: Senile osteoporosis
     Dosage: 20MCG DAILY SUBCUTANEOUS?
     Route: 058
     Dates: start: 20220405
  2. FORTEO [Suspect]
     Active Substance: TERIPARATIDE
     Indication: Pathological fracture

REACTIONS (5)
  - Abdominal distension [None]
  - Weight increased [None]
  - Pain in extremity [None]
  - Bone pain [None]
  - Ankle fracture [None]
